FAERS Safety Report 22316592 (Version 5)
Quarter: 2024Q1

REPORT INFORMATION
  Report Type: Report from Study
  Country: US (occurrence: US)
  Receive Date: 20230513
  Receipt Date: 20240329
  Transmission Date: 20240410
  Serious: No
  Sender: FDA-Public Use
  Company Number: US-002147023-NVSC2023US107405

PATIENT
  Age: 81 Year
  Sex: Male

DRUGS (2)
  1. LEQVIO [Suspect]
     Active Substance: INCLISIRAN SODIUM
     Indication: Product used for unknown indication
     Dosage: UNK
     Route: 058
     Dates: start: 20230501
  2. LEQVIO [Suspect]
     Active Substance: INCLISIRAN SODIUM
     Dosage: UNK
     Route: 065
     Dates: start: 20231009

REACTIONS (3)
  - Injection site pain [Unknown]
  - Product dose omission issue [Unknown]
  - Heart rate decreased [Recovered/Resolved]

NARRATIVE: CASE EVENT DATE: 20230501
